FAERS Safety Report 6380456-8 (Version None)
Quarter: 2009Q3

REPORT INFORMATION
  Report Type: 
  Country: None (occurrence: None)
  Receive Date: 20090929
  Receipt Date: 20090902
  Transmission Date: 20100115
  Serious: No
  Sender: FDA-Public Use
  Company Number: US-BAYER-200932777NA

PATIENT
  Age: 20 Year
  Sex: Male
  Weight: 64 kg

DRUGS (1)
  1. MAGNEVIST [Suspect]
     Indication: ANGIOGRAM
     Dosage: TOTAL DAILY DOSE: 19 ML  UNIT DOSE: 20 ML
     Route: 042
     Dates: start: 20090826, end: 20090826

REACTIONS (2)
  - EYELID OEDEMA [None]
  - NASAL CONGESTION [None]
